FAERS Safety Report 4492278-3 (Version None)
Quarter: 2004Q3

REPORT INFORMATION
  Report Type: 
  Country: None (occurrence: None)
  Receive Date: 20040920
  Receipt Date: 20040820
  Transmission Date: 20050211
  Serious: Yes (Other)
  Sender: FDA-Public Use
  Company Number: 04-323-0151

PATIENT
  Age: 43 Year
  Sex: Female
  Weight: 63.2 kg

DRUGS (5)
  1. LEUCOVORIN, UNKNOWN STRENGTH, BEN VENUE LABS [Suspect]
     Dosage: 400MG/M2 IV
     Route: 042
     Dates: start: 20040720
  2. LEUCOVORIN, UNKNOWN STRENGTH, BEN VENUE LABS [Suspect]
     Dosage: 400MG/M2 IV
     Route: 042
     Dates: start: 20040803
  3. LEUCOVORIN, UNKNOWN STRENGTH, BEN VENUE LABS [Suspect]
     Dosage: 400MG/M2 IV
     Route: 042
     Dates: start: 20040817
  4. OXALIPLATIN [Concomitant]
  5. BEVACIZUMAB [Concomitant]

REACTIONS (1)
  - RASH PRURITIC [None]
